FAERS Safety Report 13064921 (Version 5)
Quarter: 2017Q2

REPORT INFORMATION
  Report Type: Spontaneous
  Country: US (occurrence: US)
  Receive Date: 20161227
  Receipt Date: 20170420
  Transmission Date: 20170830
  Serious: Yes (Other)
  Sender: FDA-Public Use
  Company Number: US-ASTELLAS-2016US036160

PATIENT
  Sex: Female

DRUGS (8)
  1. SINGULAIR [Concomitant]
     Active Substance: MONTELUKAST SODIUM
     Indication: PRODUCT USED FOR UNKNOWN INDICATION
     Dosage: UNK UNK, UNKNOWN FREQ.
     Route: 065
  2. COLESTID [Suspect]
     Active Substance: COLESTIPOL HYDROCHLORIDE
     Indication: DIARRHOEA
     Route: 065
  3. ZEGERID                            /00661201/ [Concomitant]
     Active Substance: OMEPRAZOLE
     Indication: PRODUCT USED FOR UNKNOWN INDICATION
     Dosage: UNK UNK, TWICE DAILY
     Route: 065
  4. MYRBETRIQ [Suspect]
     Active Substance: MIRABEGRON
     Indication: HYPERTONIC BLADDER
     Route: 048
     Dates: start: 201606
  5. ABILIFY [Suspect]
     Active Substance: ARIPIPRAZOLE
     Indication: DEPRESSION
     Dosage: UNK UNK, UNKNOWN FREQ.
     Route: 065
     Dates: start: 2016
  6. MYRBETRIQ [Suspect]
     Active Substance: MIRABEGRON
     Indication: HYPERTONIC BLADDER
     Route: 048
     Dates: start: 201605, end: 201606
  7. LATUDA [Suspect]
     Active Substance: LURASIDONE HYDROCHLORIDE
     Indication: BIPOLAR DISORDER
     Dosage: UNK, UNKNOWN FREQ.
     Route: 048
     Dates: start: 2016
  8. PREMARIN [Concomitant]
     Active Substance: ESTROGENS, CONJUGATED
     Indication: PRODUCT USED FOR UNKNOWN INDICATION
     Dosage: UNK UNK, UNKNOWN FREQ.
     Route: 065

REACTIONS (7)
  - Musculoskeletal stiffness [Recovered/Resolved]
  - Joint swelling [Recovered/Resolved]
  - Dyspnoea [Unknown]
  - Parkinson^s disease [Recovered/Resolved]
  - Drug ineffective [Unknown]
  - Suicidal ideation [Recovered/Resolved]
  - Peripheral swelling [Recovered/Resolved]

NARRATIVE: CASE EVENT DATE: 2016
